FAERS Safety Report 9990382 (Version 1)
Quarter: 2014Q1

REPORT INFORMATION
  Report Type: Spontaneous
  Country: US (occurrence: None)
  Receive Date: 20140123
  Receipt Date: 20140123
  Transmission Date: 20141002
  Serious: Yes (Hospitalization)
  Sender: FDA-Public Use
  Company Number: UTC-035321

PATIENT
  Age: 61 Year
  Sex: Female
  Weight: 86.4 kg

DRUGS (4)
  1. REMODULIN [Suspect]
     Indication: PULMONARY ARTERIAL HYPERTENSION
     Dosage: 123.84 UG/KG (0.086 UG/KG. 1 IN 1 MIN), INTRAVENOUS DRIP
     Route: 041
     Dates: start: 20100122
  2. ACIRCA (TADALAFIL) [Concomitant]
  3. TRACLEER (BOSENTAN) [Concomitant]
  4. COUMADIN (WARFARIN) [Concomitant]

REACTIONS (1)
  - Diarrhoea [None]
